FAERS Safety Report 18588514 (Version 1)
Quarter: 2020Q4

REPORT INFORMATION
  Report Type: Spontaneous
  Country: US (occurrence: US)
  Receive Date: 20201207
  Receipt Date: 20201207
  Transmission Date: 20210114
  Serious: No
  Sender: FDA-Public Use
  Company Number: US-FRESENIUS KABI-FK202012917

PATIENT
  Age: 60 Year
  Sex: Female

DRUGS (1)
  1. SENSORCAINE MPF [Suspect]
     Active Substance: BUPIVACAINE HYDROCHLORIDE
     Indication: PAIN MANAGEMENT
     Dates: start: 20201130, end: 20201130

REACTIONS (2)
  - Erythema [Recovered/Resolved]
  - Headache [Recovered/Resolved]

NARRATIVE: CASE EVENT DATE: 20201201
